FAERS Safety Report 24014204 (Version 2)
Quarter: 2024Q3

REPORT INFORMATION
  Report Type: Spontaneous
  Country: US (occurrence: US)
  Receive Date: 20240626
  Receipt Date: 20240709
  Transmission Date: 20241016
  Serious: Yes (Hospitalization)
  Sender: TEVA
  Company Number: US-TEVA-VS-3212149

PATIENT
  Age: 77 Year
  Sex: Female

DRUGS (3)
  1. LORAZEPAM [Suspect]
     Active Substance: LORAZEPAM
     Indication: Catatonia
     Route: 048
  2. LORAZEPAM [Suspect]
     Active Substance: LORAZEPAM
     Indication: Catatonia
     Route: 042
  3. CLONAZEPAM [Suspect]
     Active Substance: CLONAZEPAM
     Indication: Catatonia
     Route: 048

REACTIONS (1)
  - Delirium [Recovered/Resolved]
